FAERS Safety Report 17762221 (Version 2)
Quarter: 2020Q3

REPORT INFORMATION
  Report Type: Spontaneous
  Country: US (occurrence: US)
  Receive Date: 20200508
  Receipt Date: 20200713
  Transmission Date: 20201102
  Serious: Yes (Hospitalization, Other)
  Sender: FDA-Public Use
  Company Number: US-NOVOPROD-726664

PATIENT
  Age: 76 Year
  Sex: Male

DRUGS (3)
  1. NOVOLOG [Suspect]
     Active Substance: INSULIN ASPART
     Indication: TYPE 1 DIABETES MELLITUS
     Dosage: 3?5 UNITS THREE TIMES A DAY, SLIDING SCALE
     Route: 058
     Dates: start: 2020
  2. NOVOLOG [Suspect]
     Active Substance: INSULIN ASPART
     Dosage: 3?5 UNITS TID, SLIDING SCALE
     Route: 058
  3. NOVOLOG [Suspect]
     Active Substance: INSULIN ASPART
     Dosage: DOUBLE SHOOT INSULIN
     Route: 058

REACTIONS (19)
  - Colitis [Recovered/Resolved]
  - Eating disorder [Unknown]
  - Atrial fibrillation [Recovered/Resolved]
  - Hypokalaemia [Recovered/Resolved]
  - Dehydration [Recovered/Resolved]
  - Anxiety [Recovered/Resolved]
  - Product quality issue [Unknown]
  - Diabetic ketoacidosis [Unknown]
  - Cerebrovascular accident [Unknown]
  - Vomiting [Recovered/Resolved]
  - Nervousness [Recovered/Resolved]
  - Blood glucose decreased [Unknown]
  - Product storage error [Unknown]
  - Diabetic ketoacidosis [Recovered/Resolved]
  - Mania [Recovered/Resolved]
  - Vision blurred [Recovered/Resolved]
  - Visual impairment [Unknown]
  - Blood glucose increased [Unknown]
  - Pancreatic failure [Unknown]

NARRATIVE: CASE EVENT DATE: 202004
